FAERS Safety Report 12502883 (Version 1)
Quarter: 2016Q2

REPORT INFORMATION
  Report Type: Spontaneous
  Country: US (occurrence: US)
  Receive Date: 20160628
  Receipt Date: 20160628
  Transmission Date: 20160815
  Serious: Yes (Death, Other)
  Sender: FDA-Public Use
  Company Number: US-THE MEDICINES COMPANY-US-MDCO-16-00228

PATIENT
  Age: 57 Year
  Sex: Female

DRUGS (6)
  1. TIGECYCLINE. [Suspect]
     Active Substance: TIGECYCLINE
     Indication: ENTEROCOCCAL BACTERAEMIA
     Dosage: NOT REPORTED
  2. ORBACTIV [Suspect]
     Active Substance: ORITAVANCIN
  3. ORBACTIV [Suspect]
     Active Substance: ORITAVANCIN
  4. ORBACTIV [Suspect]
     Active Substance: ORITAVANCIN
  5. DAPTOMYCIN. [Concomitant]
     Active Substance: DAPTOMYCIN
     Indication: ENTEROCOCCAL BACTERAEMIA
     Dosage: NOT REPORTED
  6. ORBACTIV [Suspect]
     Active Substance: ORITAVANCIN
     Indication: ENTEROCOCCAL BACTERAEMIA

REACTIONS (3)
  - Hepatotoxicity [Unknown]
  - Off label use [Unknown]
  - Sepsis [Fatal]
